FAERS Safety Report 8155714-7 (Version None)
Quarter: 2012Q1

REPORT INFORMATION
  Report Type: 
  Country: None (occurrence: None)
  Receive Date: 20120222
  Receipt Date: 20120214
  Transmission Date: 20120608
  Serious: Yes (Hospitalization, Other)
  Sender: FDA-Public Use
  Company Number: US-BAYER-201024066NA

PATIENT
  Age: 45 Year
  Sex: Female
  Weight: 91.61 kg

DRUGS (4)
  1. SYNTHROID [Concomitant]
     Dosage: 150 UNK, UNK
     Route: 048
  2. ALLERGY MEDICINE [Concomitant]
     Dosage: UNK UNK, PRN
     Route: 048
  3. YAZ [Suspect]
     Indication: CONTRACEPTION
     Dosage: UNK
     Route: 048
     Dates: start: 20080101, end: 20090601
  4. SINUS MEDICATION [Concomitant]
     Dosage: UNK UNK, QD

REACTIONS (3)
  - THROMBOSIS [None]
  - INTRACRANIAL VENOUS SINUS THROMBOSIS [None]
  - SUPERIOR SAGITTAL SINUS THROMBOSIS [None]
